FAERS Safety Report 18599264 (Version 4)
Quarter: 2021Q2

REPORT INFORMATION
  Report Type: Spontaneous
  Country: FR (occurrence: FR)
  Receive Date: 20201210
  Receipt Date: 20210601
  Transmission Date: 20210717
  Serious: Yes (Death, Other)
  Sender: FDA-Public Use
  Company Number: FR-SA-2020SA353757

PATIENT
  Age: 43 Year
  Sex: Male

DRUGS (1)
  1. RIFINAH [Suspect]
     Active Substance: ISONIAZID\RIFAMPIN
     Indication: LATENT TUBERCULOSIS
     Dosage: 2 DF, QD
     Route: 048
     Dates: start: 20200918

REACTIONS (9)
  - Thrombotic microangiopathy [Fatal]
  - Nausea [Unknown]
  - Feeding disorder [Unknown]
  - Vomiting [Unknown]
  - Abdominal pain upper [Unknown]
  - Headache [Unknown]
  - Malaise [Unknown]
  - Haematuria [Unknown]
  - Purpura [Unknown]

NARRATIVE: CASE EVENT DATE: 20201020
